FAERS Safety Report 7481986-8 (Version None)
Quarter: 2011Q2

REPORT INFORMATION
  Report Type: 
  Country: None (occurrence: None)
  Receive Date: 20110516
  Receipt Date: 20110510
  Transmission Date: 20111010
  Serious: Yes (Other)
  Sender: FDA-Public Use
  Company Number: CHPA2011US06421

PATIENT
  Age: 2 Year
  Sex: Female

DRUGS (1)
  1. EX-LAX REG STR CHOCOLATED LAX PCS SEN [Suspect]
     Dosage: 2 PACKS, UNK
     Route: 048
     Dates: start: 20110506, end: 20110506

REACTIONS (4)
  - DIARRHOEA [None]
  - ACCIDENTAL OVERDOSE [None]
  - ACCIDENTAL DRUG INTAKE BY CHILD [None]
  - ABDOMINAL PAIN UPPER [None]
